FAERS Safety Report 9254049 (Version 1)
Quarter: 2013Q2

REPORT INFORMATION
  Report Type: Spontaneous
  Country: US (occurrence: None)
  Receive Date: 20130419
  Receipt Date: 20130419
  Transmission Date: 20140414
  Serious: Yes (Hospitalization, Other)
  Sender: FDA-Public Use
  Company Number: SYM-2013-02676

PATIENT
  Age: 84 Year
  Sex: Female

DRUGS (4)
  1. CARDIZEM [Suspect]
     Indication: PRODUCT USED FOR UNKNOWN INDICATION
  2. CARDUR [Suspect]
     Indication: HYPERTENSION
     Route: 048
  3. ATROVENT (IPRATROPIUM BROMIDE) [Concomitant]
  4. WARFARIN (WARFARIN) [Suspect]

REACTIONS (2)
  - Cardiac ablation [None]
  - Malaise [None]
